FAERS Safety Report 7313338-5 (Version None)
Quarter: 2011Q1

REPORT INFORMATION
  Report Type: 
  Country: None (occurrence: None)
  Receive Date: 20110225
  Receipt Date: 20110214
  Transmission Date: 20110831
  Serious: Yes (Hospitalization, Other)
  Sender: FDA-Public Use
  Company Number: FR-ELI_LILLY_AND_COMPANY-FR201101001701

PATIENT
  Age: 80 Year
  Sex: Female
  Weight: 69 kg

DRUGS (5)
  1. POLY-KARAYA [Concomitant]
  2. FORTEO [Suspect]
     Indication: OSTEOPOROSIS
     Dosage: 20 UG, DAILY (1/D)
     Route: 058
     Dates: start: 20101104
  3. CELECTOL [Concomitant]
     Dosage: 0.5 D/F, DAILY (1/D)
     Route: 048
  4. SPASFON [Concomitant]
     Dosage: 1 D/F, 3/D
     Route: 048
  5. DIAMOX /00016902/ [Concomitant]
     Dosage: 0.5 D/F, DAILY (1/D)
     Route: 048

REACTIONS (1)
  - CORNEAL PERFORATION [None]
